FAERS Safety Report 9527562 (Version 1)
Quarter: 2013Q1

REPORT INFORMATION
  Report Type: Spontaneous
  Country: US (occurrence: None)
  Receive Date: 20130312
  Receipt Date: 20130312
  Transmission Date: 20140127
  Serious: Yes (Other)
  Sender: FDA-Public Use
  Company Number: TH-2013-00018

PATIENT
  Age: 57 Year
  Sex: Male

DRUGS (2)
  1. EGRIFTA [Suspect]
     Indication: PRODUCT USED FOR UNKNOWN INDICATION
     Dosage: 1 IN 1 D
     Dates: start: 20121009, end: 20121205
  2. UNSPECIFIED SUPPLEMENTS [Concomitant]

REACTIONS (3)
  - Blood glucose increased [None]
  - Arthralgia [None]
  - Drug ineffective [None]
